FAERS Safety Report 15741328 (Version 2)
Quarter: 2018Q4

REPORT INFORMATION
  Report Type: Spontaneous
  Country: CO (occurrence: CO)
  Receive Date: 20181219
  Receipt Date: 20181221
  Transmission Date: 20190205
  Serious: No
  Sender: FDA-Public Use
  Company Number: CO-BAYER-2018-238542

PATIENT
  Age: 47 Year
  Sex: Male

DRUGS (2)
  1. METOPROLOL. [Concomitant]
     Active Substance: METOPROLOL
     Dosage: 50 MG, QD
  2. ASPIRINA 100 MG [Suspect]
     Active Substance: ASPIRIN
     Dosage: 100 MG, QOD

REACTIONS (3)
  - Fatigue [Unknown]
  - Palpitations [Unknown]
  - Incorrect dose administered [Not Recovered/Not Resolved]
